FAERS Safety Report 4811389-3 (Version None)
Quarter: 2005Q4

REPORT INFORMATION
  Report Type: 
  Country: None (occurrence: None)
  Receive Date: 20051027
  Receipt Date: 20051019
  Transmission Date: 20060501
  Serious: Yes (Hospitalization)
  Sender: FDA-Public Use
  Company Number: PHBS2005JP15504

PATIENT
  Age: 69 Year
  Sex: Male
  Weight: 75 kg

DRUGS (5)
  1. VOLTAREN [Suspect]
     Indication: ARTHRALGIA
     Route: 048
     Dates: start: 20020101, end: 20020101
  2. LORNOXICAM [Concomitant]
     Indication: ARTHRALGIA
     Dates: start: 20020101, end: 20020101
  3. LOXOPROFEN SODIUM [Concomitant]
     Indication: ARTHRALGIA
     Dates: start: 20020101, end: 20020101
  4. CEFACLOR [Concomitant]
     Indication: MONARTHRITIS
     Dates: start: 20020101
  5. CEFAZOLIN SODIUM [Concomitant]
     Indication: MONARTHRITIS
     Dates: start: 20020101

REACTIONS (1)
  - NEPHRITIS [None]
